FAERS Safety Report 5244043-7 (Version None)
Quarter: 2007Q1

REPORT INFORMATION
  Report Type: 
  Country: None (occurrence: None)
  Receive Date: 20070215
  Receipt Date: 20070126
  Transmission Date: 20070707
  Serious: No
  Sender: FDA-Public Use
  Company Number: ENT 2006-0180

PATIENT
  Age: 79 Year
  Sex: Male

DRUGS (2)
  1. COMTAN [Suspect]
     Dosage: 800 MG (200 MG,SEE IMAGE 4 IN 1 D); ORAL, 600 MG (200 MG, 3 IN 1 D); ORAL
     Route: 048
     Dates: start: 20060228
  2. CARBIDOPA AND LEVODOPA [Concomitant]

REACTIONS (5)
  - ANXIETY [None]
  - CONDITION AGGRAVATED [None]
  - DRUG EFFECT DECREASED [None]
  - HALLUCINATION, VISUAL [None]
  - INSOMNIA [None]
